FAERS Safety Report 4896811-9 (Version None)
Quarter: 2006Q1

REPORT INFORMATION
  Report Type: 
  Country: None (occurrence: None)
  Receive Date: 20060126
  Receipt Date: 20060116
  Transmission Date: 20060701
  Serious: Yes (Death, Hospitalization, Other)
  Sender: FDA-Public Use
  Company Number: 2005-12-1271

PATIENT
  Age: 65 Year
  Sex: Female
  Weight: 55 kg

DRUGS (8)
  1. INTRON A [Suspect]
     Indication: HEPATITIS C
     Dosage: 6 MIU QD-TIW* INTRAMUSCULAR
     Route: 030
     Dates: start: 20050318, end: 20050325
  2. INTRON A [Suspect]
     Indication: HEPATITIS C
     Dosage: 6 MIU QD-TIW* INTRAMUSCULAR
     Route: 030
     Dates: start: 20050318, end: 20051217
  3. INTRON A [Suspect]
     Indication: HEPATITIS C
     Dosage: 6 MIU QD-TIW* INTRAMUSCULAR
     Route: 030
     Dates: start: 20050326, end: 20051217
  4. REBETOL [Suspect]
     Indication: HEPATITIS C
     Dosage: 600 MG ORAL
     Route: 048
     Dates: start: 20050318, end: 20051217
  5. NORVASC [Concomitant]
  6. RENIVACE TABLETS [Concomitant]
  7. PROMAC (POLAPREZINC) GRANULES [Concomitant]
  8. NOVOLIN [Concomitant]

REACTIONS (5)
  - BLOOD GLUCOSE INCREASED [None]
  - CEREBRAL HAEMORRHAGE [None]
  - DROWNING [None]
  - HYPOGLYCAEMIA [None]
  - PLATELET COUNT DECREASED [None]
